FAERS Safety Report 17354659 (Version 1)
Quarter: 2020Q1

REPORT INFORMATION
  Report Type: Spontaneous
  Country: US (occurrence: US)
  Receive Date: 20200116
  Receipt Date: 20200116
  Transmission Date: 20200409
  Serious: Yes (Hospitalization)
  Sender: FDA-Public Use
  Company Number: None

PATIENT
  Age: 68 Year
  Sex: Male
  Weight: 95.1 kg

DRUGS (1)
  1. NALOXEGOL OXALATE. [Suspect]
     Active Substance: NALOXEGOL OXALATE
     Dates: end: 20200102

REACTIONS (8)
  - Hypotension [None]
  - Muscular weakness [None]
  - Pyrexia [None]
  - Deep vein thrombosis [None]
  - Pathological fracture [None]
  - Sepsis [None]
  - Pleural effusion [None]
  - Pseudomonas infection [None]

NARRATIVE: CASE EVENT DATE: 20200102
